FAERS Safety Report 24602311 (Version 2)
Quarter: 2024Q4

REPORT INFORMATION
  Report Type: Report from Study
  Country: US (occurrence: US)
  Receive Date: 20241111
  Receipt Date: 20241213
  Transmission Date: 20250115
  Serious: Yes (Death, Hospitalization, Other)
  Sender: CSL BEHRING
  Company Number: US-BEH-2024174952

PATIENT
  Age: 79 Year
  Sex: Female
  Weight: 79.365 kg

DRUGS (1)
  1. ZEMAIRA [Suspect]
     Active Substance: .ALPHA.1-PROTEINASE INHIBITOR HUMAN
     Indication: Alpha-1 antitrypsin deficiency
     Route: 065

REACTIONS (9)
  - Death [Fatal]
  - Carbon dioxide increased [Unknown]
  - Dyspnoea [Unknown]
  - Chronic obstructive pulmonary disease [Unknown]
  - Pneumonia [Recovering/Resolving]
  - Carbon dioxide decreased [Recovering/Resolving]
  - Pneumonia [Unknown]
  - Product dose omission issue [Unknown]
  - Insurance issue [Unknown]

NARRATIVE: CASE EVENT DATE: 20240701
